FAERS Safety Report 18121672 (Version 8)
Quarter: 2022Q3

REPORT INFORMATION
  Report Type: Report from Study
  Country: US (occurrence: None)
  Receive Date: 20200807
  Receipt Date: 20220913
  Transmission Date: 20221027
  Serious: Yes (Death, Hospitalization, Other)
  Sender: FDA-Public Use
  Company Number: US-ROCHE-2654201

PATIENT
  Age: 78 Year
  Sex: Male
  Weight: 77.7 kg

DRUGS (4)
  1. ATEZOLIZUMAB [Suspect]
     Active Substance: ATEZOLIZUMAB
     Indication: Diffuse large B-cell lymphoma
     Dosage: OVER 60 MINUTES ON DAY 1 AND 15 , LAST ADMINISTERED DOSE: 23/MAR/2020, ONGOING: UNK
     Route: 041
     Dates: start: 20200323
  2. RITUXIMAB [Suspect]
     Active Substance: RITUXIMAB
     Indication: Diffuse large B-cell lymphoma
     Dosage: OVER 60 MINUTES ON DAY 1 AND 15 , LAST ADMINISTERED DOSE: 23/MAR/2020, ONGOING: UNK
     Route: 041
     Dates: start: 20200225
  3. GEMCITABINE HYDROCHLORIDE [Suspect]
     Active Substance: GEMCITABINE HYDROCHLORIDE
     Indication: Diffuse large B-cell lymphoma
     Dosage: ON DAY 1 AND 15, LAST ADMINISTERED DOSE: 23/MAR/2020
     Route: 042
     Dates: start: 20200225
  4. OXALIPLATIN [Suspect]
     Active Substance: OXALIPLATIN
     Indication: Diffuse large B-cell lymphoma
     Dosage: ON DAY 1 AND 15, LAST ADMINISTERED DOSE: 23/MAR/2020
     Route: 042
     Dates: start: 20200225

REACTIONS (11)
  - Cardiac arrest [Fatal]
  - Acute kidney injury [Unknown]
  - Atrial fibrillation [Unknown]
  - Dyspnoea [Unknown]
  - Pyrexia [Unknown]
  - Hyperkalaemia [Unknown]
  - Hypernatraemia [Unknown]
  - Respiratory failure [Unknown]
  - Dizziness [Unknown]
  - Hypersensitivity [Unknown]
  - Infusion related reaction [Recovered/Resolved]

NARRATIVE: CASE EVENT DATE: 20200323
